FAERS Safety Report 5878652-9 (Version None)
Quarter: 2008Q3

REPORT INFORMATION
  Report Type: 
  Country: None (occurrence: None)
  Receive Date: 20080912
  Receipt Date: 20080902
  Transmission Date: 20090109
  Serious: Yes (Hospitalization)
  Sender: FDA-Public Use
  Company Number: US-WYE-H05824108

PATIENT
  Sex: Female
  Weight: 122.58 kg

DRUGS (20)
  1. RELISTOR [Suspect]
     Indication: CONSTIPATION
     Route: 058
     Dates: start: 20080826, end: 20080831
  2. MAGNESIUM OXIDE [Concomitant]
     Indication: MINERAL SUPPLEMENTATION
     Route: 048
  3. DIOVAN [Concomitant]
     Indication: HYPERTENSION
     Route: 048
  4. SEROQUEL [Concomitant]
     Indication: PSYCHOTIC DISORDER
     Route: 048
  5. CHLORPROMAZINE [Concomitant]
     Indication: PSYCHOTIC DISORDER
  6. SIMVASTATIN [Concomitant]
  7. METOPROLOL TARTRATE [Concomitant]
  8. GABAPENTIN [Concomitant]
     Indication: PAIN
  9. MORPHINE [Concomitant]
     Indication: PAIN
  10. DEPAKOTE [Concomitant]
  11. HYDROCODONE BITARTRATE [Concomitant]
     Dosage: 5-500 3 TIMES DAILY
  12. METFORMIN HCL [Concomitant]
  13. ACIDOPHILUS ^ZYMA^ [Concomitant]
     Dosage: 2 CAPLETS
     Route: 048
  14. INSULIN INSULATARD NPH NORDISK [Concomitant]
     Dosage: DAILY DOSE NOT SPECIFIED
     Route: 058
  15. POTASSIUM CHLORIDE [Concomitant]
  16. SORBITOL [Concomitant]
  17. COUMADIN [Concomitant]
  18. TYLENOL (CAPLET) [Concomitant]
     Dosage: PRN
  19. BISACODYL [Concomitant]
     Dosage: PRN
  20. OMEPRAZOLE [Concomitant]
     Indication: HERNIA
     Route: 048

REACTIONS (3)
  - DEPRESSED LEVEL OF CONSCIOUSNESS [None]
  - DRUG EFFECT DECREASED [None]
  - SEPSIS [None]
